FAERS Safety Report 6761466-5 (Version None)
Quarter: 2010Q2

REPORT INFORMATION
  Report Type: 
  Country: None (occurrence: None)
  Receive Date: 20100607
  Receipt Date: 20100525
  Transmission Date: 20101027
  Serious: Yes (Hospitalization)
  Sender: FDA-Public Use
  Company Number: LEO-2010-00477(0)

PATIENT
  Age: 65 Year
  Sex: Female
  Weight: 83 kg

DRUGS (2)
  1. INNOHEP [Suspect]
     Indication: THROMBOSIS
     Dates: start: 20091115, end: 20091208
  2. PRADAXA [Suspect]
     Indication: THROMBOSIS
     Dates: start: 20091110, end: 20091114

REACTIONS (3)
  - HAEMATOCRIT DECREASED [None]
  - HAEMATOMA [None]
  - POST PROCEDURAL INFECTION [None]
